FAERS Safety Report 4509880-2 (Version None)
Quarter: 2004Q4

REPORT INFORMATION
  Report Type: 
  Country: None (occurrence: None)
  Receive Date: 20041119
  Receipt Date: 20041027
  Transmission Date: 20050328
  Serious: Yes (Hospitalization)
  Sender: FDA-Public Use
  Company Number: EWC041041067

PATIENT
  Age: 74 Year
  Sex: Female
  Weight: 54 kg

DRUGS (7)
  1. HUMULIN 70/30 [Suspect]
     Indication: DIABETES MELLITUS
     Dosage: 36 IU DAY
     Dates: start: 20041003
  2. GLUFORMIN (METFORMIN HYDROCHLORIDE) [Concomitant]
  3. GLUCOBAY [Concomitant]
  4. MOLSIDOMINE [Concomitant]
  5. EFFOX (ISOSORBIDE MONONITRATE) [Concomitant]
  6. ASPARGIN (ASPARTIC ACID) [Concomitant]
  7. INSULIN MIXTARD (INSULIN INJECTION, ISOPHANE) [Concomitant]

REACTIONS (4)
  - ACCIDENTAL OVERDOSE [None]
  - FEELING ABNORMAL [None]
  - HYPOGLYCAEMIA [None]
  - PHARMACEUTICAL PRODUCT COMPLAINT [None]
